FAERS Safety Report 7538334-4 (Version None)
Quarter: 2011Q2

REPORT INFORMATION
  Report Type: 
  Country: None (occurrence: None)
  Receive Date: 20110609
  Receipt Date: 20110531
  Transmission Date: 20111010
  Serious: Yes (Hospitalization)
  Sender: FDA-Public Use
  Company Number: JP-BAXTER-2009BH019368

PATIENT
  Age: 12 Year
  Sex: Male
  Weight: 48 kg

DRUGS (6)
  1. ADVATE [Suspect]
     Indication: FACTOR VIII DEFICIENCY
     Route: 042
     Dates: start: 20081006, end: 20081101
  2. ADVATE [Suspect]
     Route: 042
     Dates: start: 20080920, end: 20081005
  3. TRANSAMIN [Concomitant]
     Indication: HAEMORRHAGE PROPHYLAXIS
     Route: 042
     Dates: start: 20081102, end: 20081127
  4. ADONA [Concomitant]
     Indication: HAEMORRHAGE PROPHYLAXIS
     Route: 042
     Dates: start: 20081102, end: 20081127
  5. ADVATE [Suspect]
     Route: 042
     Dates: start: 20081214
  6. ADVATE [Suspect]
     Route: 042
     Dates: start: 20070406, end: 20080919

REACTIONS (5)
  - HEPATIC FUNCTION ABNORMAL [None]
  - SUBCUTANEOUS HAEMATOMA [None]
  - HEAD INJURY [None]
  - ALANINE AMINOTRANSFERASE INCREASED [None]
  - ANAEMIA [None]
